FAERS Safety Report 8304115-7 (Version None)
Quarter: 2012Q2

REPORT INFORMATION
  Report Type: 
  Country: None (occurrence: None)
  Receive Date: 20120418
  Receipt Date: 20120404
  Transmission Date: 20120825
  Serious: Yes (Other)
  Sender: FDA-Public Use
  Company Number: JPI-P-015067

PATIENT
  Age: 59 Year
  Sex: Male

DRUGS (2)
  1. UNSPECIFIED PAIN MEDICATION [Concomitant]
  2. XYREM [Suspect]
     Indication: PRODUCT USED FOR UNKNOWN INDICATION
     Dosage: 4.5 GM (2.25 GM, 2 IN 1 D), ORAL; ORAL; 4.5 GM (2.25 GM, 2 N1 D),ORAL
     Route: 048
     Dates: start: 20050517

REACTIONS (6)
  - APNOEIC ATTACK [None]
  - NIGHT SWEATS [None]
  - AGGRESSION [None]
  - IMPATIENCE [None]
  - IRRITABILITY [None]
  - SLEEP-RELATED EATING DISORDER [None]
